FAERS Safety Report 7270042-X (Version None)
Quarter: 2011Q1

REPORT INFORMATION
  Report Type: 
  Country: None (occurrence: None)
  Receive Date: 20110202
  Receipt Date: 20110126
  Transmission Date: 20110831
  Serious: Yes (Death)
  Sender: FDA-Public Use
  Company Number: ES-PFIZER INC-2011013766

PATIENT
  Age: 60 Year
  Sex: Male
  Weight: 65.5 kg

DRUGS (8)
  1. VARENICLINE TARTRATE [Suspect]
     Indication: SMOKING CESSATION THERAPY
     Dosage: 0.5 MG, 1X/DAY
     Route: 048
     Dates: start: 20100824, end: 20100826
  2. ACETYLSALICYLIC ACID [Concomitant]
     Dosage: 100 MG, 1X/DAY
     Route: 048
     Dates: start: 20070928, end: 20101107
  3. VARENICLINE TARTRATE [Suspect]
     Dosage: 0.5 MG, 1X/DAY
     Route: 048
     Dates: start: 20100920
  4. TRIMETAZIDINE [Concomitant]
     Dosage: 20 MG/DAY
     Route: 048
     Dates: start: 20080821, end: 20101107
  5. VARENICLINE TARTRATE [Suspect]
     Dosage: 0.5 MG, 2X/DAY
     Route: 048
     Dates: start: 20100827, end: 20100830
  6. VARENICLINE TARTRATE [Suspect]
     Dosage: 1 MG, 2X/DAY
     Route: 048
     Dates: start: 20100831, end: 20100920
  7. ATORVASTATIN [Concomitant]
     Dosage: UNK
     Route: 048
     Dates: start: 20100604, end: 20101107
  8. ALLOPURINOL [Concomitant]
     Dosage: 100 UNK, UNK
     Dates: start: 20100604

REACTIONS (1)
  - CEREBROVASCULAR ACCIDENT [None]
